FAERS Safety Report 20997812 (Version 1)
Quarter: 2022Q2

REPORT INFORMATION
  Report Type: Spontaneous
  Country: US (occurrence: None)
  Receive Date: 20220622
  Receipt Date: 20220622
  Transmission Date: 20220721
  Serious: No
  Sender: FDA-Public Use
  Company Number: None

PATIENT
  Age: 18 Year
  Sex: Female

DRUGS (1)
  1. HUMIRA [Suspect]
     Active Substance: ADALIMUMAB
     Indication: Crohn^s disease
     Dosage: 1 PEN EVERY 14 DAYS SQ?
     Route: 058
     Dates: start: 20211123

REACTIONS (4)
  - Condition aggravated [None]
  - Abdominal discomfort [None]
  - Gastrointestinal disorder [None]
  - Drug ineffective [None]

NARRATIVE: CASE EVENT DATE: 20220518
